FAERS Safety Report 5188912-5 (Version None)
Quarter: 2006Q4

REPORT INFORMATION
  Report Type: 
  Country: None (occurrence: None)
  Receive Date: 20061215
  Receipt Date: 20061204
  Transmission Date: 20070319
  Serious: Yes (Life-Threatening, Other)
  Sender: FDA-Public Use
  Company Number: 2005133248

PATIENT
  Age: 46 Year
  Sex: Male
  Weight: 112.9457 kg

DRUGS (23)
  1. NEURONTIN [Suspect]
     Indication: MIGRAINE
     Dosage: 1600 MG (400 MG, 4 IN 1 D)
     Dates: start: 19980608, end: 20030619
  2. NEURONTIN [Suspect]
     Indication: MOVEMENT DISORDER
     Dosage: 1600 MG (400 MG, 4 IN 1 D)
     Dates: start: 19980608, end: 20030619
  3. NEURONTIN [Suspect]
     Indication: RESTLESS LEGS SYNDROME
     Dosage: 1600 MG (400 MG, 4 IN 1 D)
     Dates: start: 19980608, end: 20030619
  4. PROZAC [Concomitant]
  5. PROMETHAZINE [Concomitant]
  6. NORFLEX [Concomitant]
  7. SOMA [Concomitant]
  8. AMITRIPTYLINE HCL [Concomitant]
  9. CYMBALTA [Concomitant]
  10. KLONOPIN [Concomitant]
  11. FELDENE [Concomitant]
  12. RESTORIL [Concomitant]
  13. DURACT [Concomitant]
  14. ULTRAM [Concomitant]
  15. ELAVIL [Concomitant]
  16. CELEBREX [Concomitant]
  17. VICODIN [Concomitant]
  18. AMBIEN [Concomitant]
  19. EFFEXOR [Concomitant]
  20. SONATA [Concomitant]
  21. ZANAFLEX [Concomitant]
  22. PARAFON (CHLORZOXAZONE, PARACETAMOL) [Concomitant]
  23. BACLOFEN [Concomitant]

REACTIONS (6)
  - ALCOHOL USE [None]
  - DEPRESSION [None]
  - DRUG INEFFECTIVE [None]
  - OVERDOSE [None]
  - SUICIDAL IDEATION [None]
  - SUICIDE ATTEMPT [None]
